FAERS Safety Report 10332782 (Version 2)
Quarter: 2014Q3

REPORT INFORMATION
  Report Type: Not Available
  Country: CN (occurrence: CN)
  Receive Date: 20140722
  Receipt Date: 20140722
  Transmission Date: 20150326
  Serious: Yes (Other)
  Sender: FDA-Public Use
  Company Number: CN-NAPPMUNDI-GBR-2014-0019593

PATIENT
  Age: 58 Year
  Sex: Male

DRUGS (2)
  1. MS CONTIN [Suspect]
     Active Substance: MORPHINE SULFATE
     Indication: PAIN
     Dosage: 270 MG, TID
     Route: 048
     Dates: start: 20140212, end: 20140221
  2. MS CONTIN [Suspect]
     Active Substance: MORPHINE SULFATE
     Dosage: 180 MG, TID
     Route: 048
     Dates: start: 20140210, end: 20140211

REACTIONS (3)
  - Delirium [Recovered/Resolved]
  - Soliloquy [Recovered/Resolved]
  - Convulsion [Recovered/Resolved]

NARRATIVE: CASE EVENT DATE: 20140212
